FAERS Safety Report 18124196 (Version 3)
Quarter: 2020Q4

REPORT INFORMATION
  Report Type: Spontaneous
  Country: US (occurrence: US)
  Receive Date: 20200807
  Receipt Date: 20201028
  Transmission Date: 20210113
  Serious: No
  Sender: FDA-Public Use
  Company Number: US-IPSEN BIOPHARMACEUTICALS, INC.-2020-10241

PATIENT
  Age: 59 Year
  Sex: Female
  Weight: 46.7 kg

DRUGS (13)
  1. ALLOPURINOL. [Concomitant]
     Active Substance: ALLOPURINOL
  2. LEXAPRO [Concomitant]
     Active Substance: ESCITALOPRAM OXALATE
  3. FAMOTIDINE. [Concomitant]
     Active Substance: FAMOTIDINE
  4. MULTI-VITE [Concomitant]
     Dosage: 50 PLUS
  5. OMEGA 3 FISH OIL [Concomitant]
     Active Substance: FISH OIL\OMEGA-3 FATTY ACIDS
  6. LORATADINE. [Concomitant]
     Active Substance: LORATADINE
  7. OXYCODONE HYDROCHLORIDE. [Concomitant]
     Active Substance: OXYCODONE HYDROCHLORIDE
  8. ASPIRIN. [Concomitant]
     Active Substance: ASPIRIN
  9. POTASSIUM CHLORIDE. [Concomitant]
     Active Substance: POTASSIUM CHLORIDE
  10. METOCLOPRAMIDE. [Concomitant]
     Active Substance: METOCLOPRAMIDE
  11. HYDROXYZINE PAMOATE. [Concomitant]
     Active Substance: HYDROXYZINE PAMOATE
  12. SOMATULINE DEPOT [Suspect]
     Active Substance: LANREOTIDE ACETATE
     Indication: CARCINOID TUMOUR
     Dosage: 120 MG EVERY 28 DAYS
     Route: 058
     Dates: start: 202003
  13. SOMATULINE DEPOT [Suspect]
     Active Substance: LANREOTIDE ACETATE
     Indication: PANCREATIC CARCINOMA

REACTIONS (6)
  - Skin discolouration [Unknown]
  - Decreased appetite [Unknown]
  - Pain [Unknown]
  - Abnormal loss of weight [Unknown]
  - Oral discomfort [Unknown]
  - Tongue ulceration [Unknown]

NARRATIVE: CASE EVENT DATE: 2020
